FAERS Safety Report 13565719 (Version 1)
Quarter: 2017Q2

REPORT INFORMATION
  Report Type: Other
  Country: GB (occurrence: DE)
  Receive Date: 20170519
  Receipt Date: 20170519
  Transmission Date: 20170830
  Serious: Yes (Hospitalization, Other)
  Sender: FDA-Public Use
  Company Number: DE-INTERNATIONAL MEDICATION SYSTEMS, LIMITED-2021017

PATIENT
  Age: 8 Day
  Sex: Female

DRUGS (2)
  1. LIDOCAINE INFUSION, 4 MG/KG MILLIGRAM(S)/KILOGRAM [Suspect]
     Active Substance: LIDOCAINE HYDROCHLORIDE
  2. LIDOCAINE INFUSION, DOSE: 6 MG/KG MILLIGRAM(S)/KILOGRAM [Suspect]
     Active Substance: LIDOCAINE HYDROCHLORIDE
     Indication: CONVULSION NEONATAL

REACTIONS (2)
  - Methaemoglobinaemia [Recovering/Resolving]
  - Respiratory distress [Recovered/Resolved]
